FAERS Safety Report 11823621 (Version 3)
Quarter: 2016Q1

REPORT INFORMATION
  Report Type: Report from Study
  Country: AT (occurrence: AT)
  Receive Date: 20151210
  Receipt Date: 20160115
  Transmission Date: 20160525
  Serious: Yes (Hospitalization)
  Sender: FDA-Public Use
  Company Number: AT-JNJFOC-20151203396

PATIENT
  Age: 48 Year
  Sex: Male
  Weight: 83 kg

DRUGS (2)
  1. TRABECTEDIN [Suspect]
     Active Substance: TRABECTEDIN
     Indication: MENINGIOMA
     Route: 042
  2. TRABECTEDIN [Suspect]
     Active Substance: TRABECTEDIN
     Indication: MENINGIOMA
     Route: 042
     Dates: start: 20151013, end: 20151124

REACTIONS (1)
  - Myocarditis [Recovered/Resolved]

NARRATIVE: CASE EVENT DATE: 20151201
